FAERS Safety Report 6085672-0 (Version None)
Quarter: 2009Q1

REPORT INFORMATION
  Report Type: 
  Country: None (occurrence: None)
  Receive Date: 20090220
  Receipt Date: 20090209
  Transmission Date: 20090719
  Serious: Yes (Other)
  Sender: FDA-Public Use
  Company Number: IE-ROCHE-607693

PATIENT
  Sex: Female
  Weight: 65 kg

DRUGS (4)
  1. ISOTRETINOIN [Suspect]
     Dosage: STRENGTH: 25 MG
     Route: 048
     Dates: start: 20080828, end: 20080901
  2. ISOTRETINOIN [Suspect]
     Dosage: STRENGTH: 35 MG
     Route: 048
     Dates: start: 20080901, end: 20081101
  3. ISOTRETINOIN [Suspect]
     Dosage: STRENGTH: 50 MG
     Route: 048
     Dates: start: 20081101, end: 20081201
  4. ISOTRETINOIN [Suspect]
     Dosage: STRENGTH: 35 MG
     Route: 048
     Dates: start: 20081201, end: 20090112

REACTIONS (2)
  - HAEMOGLOBIN INCREASED [None]
  - PALLOR [None]
